FAERS Safety Report 15645761 (Version 1)
Quarter: 2018Q4

REPORT INFORMATION
  Report Type: Spontaneous
  Country: ES (occurrence: ES)
  Receive Date: 20181121
  Receipt Date: 20181121
  Transmission Date: 20190205
  Serious: Yes (Hospitalization)
  Sender: FDA-Public Use
  Company Number: PHHY2018ES159538

PATIENT
  Age: 79 Year
  Sex: Female

DRUGS (12)
  1. ESPIRONOLACTON [Suspect]
     Active Substance: SPIRONOLACTONE
     Indication: ASCITES
     Dosage: 100 MG, QD
     Route: 048
     Dates: start: 20180602
  2. INALADUO [Concomitant]
     Active Substance: FLUTICASONE PROPIONATE\SALMETEROL XINAFOATE
     Indication: BRONCHITIS CHRONIC
     Dosage: 1 ?G/L, Q12H
     Route: 055
     Dates: start: 20080521
  3. FUROSEMIDE. [Suspect]
     Active Substance: FUROSEMIDE
     Indication: ASCITES
     Dosage: UNK
     Route: 048
  4. EUTIROX [Concomitant]
     Active Substance: LEVOTHYROXINE SODIUM
     Indication: HYPOTHYROIDISM
     Dosage: 1 ?G/L, QD
     Route: 048
     Dates: start: 20160708
  5. MASTICAL D [Concomitant]
     Indication: PATHOLOGICAL FRACTURE
     Dosage: 1 ?G/L, QD
     Route: 048
     Dates: start: 20170515
  6. AMOROLFINA [Concomitant]
     Indication: HEPATIC CIRRHOSIS
     Dosage: 1 ?G/L, Q8H
     Route: 048
     Dates: start: 20180712
  7. CHLORMETHIAZOLE [Concomitant]
     Indication: PERSISTENT DEPRESSIVE DISORDER
     Dosage: 2 ?G/L, Q12H
     Route: 048
     Dates: start: 20180712
  8. PROPRANOLOL [Concomitant]
     Active Substance: PROPRANOLOL HYDROCHLORIDE
     Indication: PORTAL HYPERTENSION
     Dosage: 1 ?G/L, Q12H
     Route: 048
     Dates: start: 20180626
  9. TRAMADOL/PARACETAMOL [Concomitant]
     Active Substance: ACETAMINOPHEN\TRAMADOL
     Indication: BACK PAIN
     Dosage: 1 ?G/L, Q8H
     Route: 048
     Dates: start: 20170510
  10. OMEPRAZOL ^STADA^ [Concomitant]
     Indication: OSTEOARTHRITIS
     Dosage: 1 ?G/L, Q12H
     Route: 048
     Dates: start: 20080522
  11. SINGULAIR [Concomitant]
     Active Substance: MONTELUKAST SODIUM
     Indication: BRONCHITIS CHRONIC
     Dosage: 1 ?G/L, QD
     Route: 048
     Dates: start: 20080521
  12. SALBUTAMOL ^ALDO UNION^ [Concomitant]
     Indication: ASTHMA
     Dosage: 1 ?G/L, QD
     Route: 055
     Dates: start: 20080521

REACTIONS (3)
  - Renal impairment [Recovered/Resolved]
  - Blood creatinine increased [Recovered/Resolved]
  - Anaemia [Recovered/Resolved]

NARRATIVE: CASE EVENT DATE: 20180717
